FAERS Safety Report 18279043 (Version 3)
Quarter: 2021Q4

REPORT INFORMATION
  Report Type: Report from Study
  Country: IN (occurrence: IN)
  Receive Date: 20200917
  Receipt Date: 20211213
  Transmission Date: 20220303
  Serious: Yes (Hospitalization)
  Sender: FDA-Public Use
  Company Number: IN-002147023-NVSC2020IN247185

PATIENT

DRUGS (2)
  1. RUXOLITINIB [Suspect]
     Active Substance: RUXOLITINIB
     Indication: Polycythaemia vera
     Dosage: 10 MG, BID
     Route: 048
     Dates: start: 20191024, end: 20210924
  2. RUXOLITINIB [Suspect]
     Active Substance: RUXOLITINIB
     Dosage: 5 MG, BID
     Route: 065
     Dates: start: 20210925

REACTIONS (3)
  - Full blood count decreased [Unknown]
  - Inappropriate schedule of product administration [Unknown]
  - Vomiting [Unknown]

NARRATIVE: CASE EVENT DATE: 20200523
